FAERS Safety Report 21492243 (Version 1)
Quarter: 2022Q4

REPORT INFORMATION
  Report Type: Spontaneous
  Country: CA (occurrence: CA)
  Receive Date: 20221021
  Receipt Date: 20221021
  Transmission Date: 20230113
  Serious: Yes (Other)
  Sender: FDA-Public Use
  Company Number: CA-TEVA-2022-CA-2817723

PATIENT
  Age: 60 Year
  Sex: Male

DRUGS (15)
  1. CAMPHOR [Suspect]
     Active Substance: CAMPHOR
     Indication: Neuropathic pruritus
     Route: 061
  2. HYDROXYZINE [Suspect]
     Active Substance: HYDROXYZINE HYDROCHLORIDE
     Indication: Neuropathic pruritus
     Dosage: 75 MILLIGRAM DAILY;
     Route: 065
  3. MIRTAZAPINE [Suspect]
     Active Substance: MIRTAZAPINE
     Indication: Neuropathic pruritus
     Route: 065
  4. MIRTAZAPINE [Suspect]
     Active Substance: MIRTAZAPINE
     Route: 065
  5. PREGABALIN [Suspect]
     Active Substance: PREGABALIN
     Indication: Neuropathic pruritus
     Dosage: 100 MILLIGRAM DAILY;
     Route: 065
  6. VENLAFAXINE [Suspect]
     Active Substance: VENLAFAXINE HYDROCHLORIDE
     Indication: Neuropathic pruritus
     Dosage: 150 MILLIGRAM DAILY;
     Route: 065
  7. .DELTA.8-TETRAHYDROCANNABINOL\CANNABIDIOL\HERBALS [Suspect]
     Active Substance: .DELTA.8-TETRAHYDROCANNABINOL\CANNABIDIOL\HERBALS
     Indication: Neuropathic pruritus
     Route: 048
  8. .DELTA.8-TETRAHYDROCANNABINOL\CANNABIDIOL\HERBALS [Suspect]
     Active Substance: .DELTA.8-TETRAHYDROCANNABINOL\CANNABIDIOL\HERBALS
     Indication: Pruritus
     Dosage: 2 DOSAGE FORMS DAILY;
     Route: 048
  9. .DELTA.8-TETRAHYDROCANNABINOL\CANNABIDIOL\HERBALS [Suspect]
     Active Substance: .DELTA.8-TETRAHYDROCANNABINOL\CANNABIDIOL\HERBALS
     Route: 048
  10. .DELTA.8-TETRAHYDROCANNABINOL\CANNABIDIOL\HERBALS [Suspect]
     Active Substance: .DELTA.8-TETRAHYDROCANNABINOL\CANNABIDIOL\HERBALS
     Route: 048
  11. NORTRIPTYLINE [Suspect]
     Active Substance: NORTRIPTYLINE
     Indication: Neuropathic pruritus
     Route: 065
  12. NORTRIPTYLINE [Suspect]
     Active Substance: NORTRIPTYLINE
     Route: 065
  13. CAMPHOR [Concomitant]
     Active Substance: CAMPHOR
     Indication: Pruritus
     Route: 065
  14. CAPSAICIN [Concomitant]
     Active Substance: CAPSAICIN
     Indication: Pruritus
     Route: 065
  15. MENTHOL [Concomitant]
     Active Substance: MENTHOL
     Indication: Pruritus
     Route: 065

REACTIONS (4)
  - Anticholinergic syndrome [Unknown]
  - Drug ineffective [Unknown]
  - Sedation [Unknown]
  - Off label use [Unknown]
